FAERS Safety Report 14365798 (Version 1)
Quarter: 2018Q1

REPORT INFORMATION
  Report Type: Spontaneous
  Country: DE (occurrence: DE)
  Receive Date: 20180109
  Receipt Date: 20180109
  Transmission Date: 20180509
  Serious: Yes (Life-Threatening)
  Sender: FDA-Public Use
  Company Number: DE-CONCORDIA PHARMACEUTICALS INC.-E2B_00009346

PATIENT
  Age: 56 Year
  Sex: Male
  Weight: 78 kg

DRUGS (2)
  1. PREDNISOLONE. [Suspect]
     Active Substance: PREDNISOLONE
     Indication: ANOSMIA
     Dosage: 150 MG, 100MG, 100MG, 50MG, 50MG, 25MG, 25MG, 15MG, 15MG, 15MG, 10MG, 10MG, 5MG
     Route: 048
     Dates: start: 20160928, end: 20161010
  2. DYMISTA [Concomitant]
     Active Substance: AZELASTINE HYDROCHLORIDE\FLUTICASONE PROPIONATE
     Indication: ANOSMIA
     Dosage: 2X2 HUB
     Route: 045
     Dates: start: 20160920, end: 20160928

REACTIONS (1)
  - Subarachnoid haemorrhage [Recovered/Resolved]

NARRATIVE: CASE EVENT DATE: 20161110
